FAERS Safety Report 4674614-8 (Version None)
Quarter: 2005Q2

REPORT INFORMATION
  Report Type: 
  Country: None (occurrence: None)
  Receive Date: 20050526
  Receipt Date: 20050517
  Transmission Date: 20051028
  Serious: Yes (Other)
  Sender: FDA-Public Use
  Company Number: US-GLAXOSMITHKLINE-A0558899A

PATIENT
  Age: 57 Year
  Sex: Male

DRUGS (1)
  1. TUMS E-X TABLETS [Suspect]
     Indication: BURNING SENSATION
     Route: 048
     Dates: start: 20040601, end: 20050501

REACTIONS (1)
  - GASTRIC ULCER [None]
